FAERS Safety Report 8909386 (Version 2)
Quarter: 2012Q4

REPORT INFORMATION
  Report Type: 
  Country: US (occurrence: US)
  Receive Date: 20121115
  Receipt Date: 20121115
  Transmission Date: 20130627
  Serious: Yes (Other)
  Sender: FDA-Public Use
  Company Number: US-RANBAXY-2012US-61955

PATIENT
  Age: 52 Year
  Sex: Male

DRUGS (7)
  1. FLUCONAZOLE [Suspect]
     Indication: ORAL CANDIDIASIS
     Dosage: 400mg, daily
     Route: 048
  2. FLUTICASONE [Interacting]
     Indication: PRODUCT USED FOR UNKNOWN INDICATION
     Dosage: 250 ?g, twice daily
     Route: 055
  3. FLUTICASONE [Interacting]
     Indication: PRODUCT USED FOR UNKNOWN INDICATION
     Dosage: 500 ?g, twice daily
     Route: 055
  4. RITONAVIR [Interacting]
     Indication: HIV INFECTION
     Dosage: UNK
     Route: 065
  5. FLUTICASONE PROPIONATE [Suspect]
     Indication: DYSPNOEA
     Dosage: UNK
     Route: 045
  6. FLUTICASONE PROPIONATE [Suspect]
     Indication: NASAL CONGESTION
  7. FLUTICASONE PROPIONATE [Suspect]
     Indication: WHEEZING

REACTIONS (6)
  - Drug interaction [Unknown]
  - Immunosuppression [Recovering/Resolving]
  - Oral candidiasis [Recovering/Resolving]
  - Steroid withdrawal syndrome [Recovered/Resolved]
  - Cushing^s syndrome [Recovered/Resolved]
  - Adrenal insufficiency [Recovered/Resolved]
